FAERS Safety Report 9507552 (Version 1)
Quarter: 2013Q3

REPORT INFORMATION
  Report Type: Spontaneous
  Country: US (occurrence: None)
  Receive Date: 20130906
  Receipt Date: 20130906
  Transmission Date: 20140515
  Serious: Yes (Other)
  Sender: FDA-Public Use
  Company Number: None

PATIENT
  Age: 43 Year
  Sex: Female
  Weight: 50.8 kg

DRUGS (1)
  1. DUEXIS [Suspect]
     Indication: SCIATICA
     Dosage: 1  ILL  TWICE DAILY  TAKEN BY MOUTH
     Route: 048
     Dates: start: 20130523, end: 20130614

REACTIONS (1)
  - Alopecia [None]
